FAERS Safety Report 26001257 (Version 1)
Quarter: 2025Q4

REPORT INFORMATION
  Report Type: Spontaneous
  Country: US (occurrence: None)
  Receive Date: 20251105
  Receipt Date: 20251105
  Transmission Date: 20260118
  Serious: No
  Sender: ALKERMES
  Company Number: US-ALKERMES INC.-ALK-2025-002912

PATIENT
  Weight: 82.54 kg

DRUGS (1)
  1. LYBALVI [Suspect]
     Active Substance: OLANZAPINE\SAMIDORPHAN L-MALATE
     Indication: Product used for unknown indication
     Dosage: UNK MILLIGRAM, QD

REACTIONS (4)
  - Illness [Unknown]
  - Decreased appetite [Unknown]
  - Weight increased [Recovered/Resolved]
  - Weight decreased [Unknown]
